FAERS Safety Report 14420038 (Version 1)
Quarter: 2018Q1

REPORT INFORMATION
  Report Type: Spontaneous
  Country: KR (occurrence: KR)
  Receive Date: 20180122
  Receipt Date: 20180122
  Transmission Date: 20180509
  Serious: Yes (Death, Life-Threatening, Other)
  Sender: FDA-Public Use
  Company Number: KR-BAUSCH-BL-2018-000966

PATIENT
  Age: 69 Year
  Sex: Male

DRUGS (3)
  1. KINERET [Concomitant]
     Active Substance: ANAKINRA
     Indication: SCHNITZLER^S SYNDROME
     Route: 058
  2. PREDNISOLONE. [Suspect]
     Active Substance: PREDNISOLONE
     Indication: SCHNITZLER^S SYNDROME
     Dosage: PREDNISOLONE WAS TAPERED TO A DOSE OF 5 MG/DAY AFTER ONE MONTH
     Route: 065
  3. PREDNISOLONE. [Suspect]
     Active Substance: PREDNISOLONE
     Route: 065

REACTIONS (1)
  - Pneumonia [Fatal]
